FAERS Safety Report 24917237 (Version 1)
Quarter: 2025Q1

REPORT INFORMATION
  Report Type: Spontaneous
  Country: US (occurrence: None)
  Receive Date: 20250202
  Receipt Date: 20250202
  Transmission Date: 20250409
  Serious: Yes (Life-Threatening)
  Sender: FDA-CTU
  Company Number: None

PATIENT
  Age: 14 Year
  Sex: Female
  Weight: 81 kg

DRUGS (6)
  1. FYCOMPA [Suspect]
     Active Substance: PERAMPANEL
     Indication: Epilepsy
     Dates: start: 20250117, end: 20250130
  2. LAMICTAL [Suspect]
     Active Substance: LAMOTRIGINE
  3. PROZAC [Suspect]
     Active Substance: FLUOXETINE HYDROCHLORIDE
  4. VIMPAT [Suspect]
     Active Substance: LACOSAMIDE
  5. KEPPRA [Suspect]
     Active Substance: LEVETIRACETAM
  6. SERTRALINE [Concomitant]
     Active Substance: SERTRALINE HYDROCHLORIDE

REACTIONS (6)
  - Seizure [None]
  - Disruptive mood dysregulation disorder [None]
  - Homicidal ideation [None]
  - Self-destructive behaviour [None]
  - Skin laceration [None]
  - Aggression [None]

NARRATIVE: CASE EVENT DATE: 20250130
